FAERS Safety Report 5071883-X (Version None)
Quarter: 2006Q3

REPORT INFORMATION
  Report Type: 
  Country: None (occurrence: None)
  Receive Date: 20060804
  Receipt Date: 20060105
  Transmission Date: 20061208
  Serious: Yes (Disabling)
  Sender: FDA-Public Use
  Company Number: US-BOEHRINGER INGELHEIM PHARMACEUTICALS, INC.-2006-BP-00136BP

PATIENT
  Sex: Male

DRUGS (3)
  1. FLOMAX [Suspect]
     Indication: BENIGN PROSTATIC HYPERPLASIA
     Route: 048
     Dates: start: 20051001, end: 20060101
  2. FLOMAX [Suspect]
     Indication: URINARY TRACT DISORDER
  3. LIPITOR [Concomitant]
     Route: 048

REACTIONS (2)
  - BLINDNESS UNILATERAL [None]
  - OPTIC NERVE DISORDER [None]
